FAERS Safety Report 6201916-6 (Version None)
Quarter: 2009Q2

REPORT INFORMATION
  Report Type: 
  Country: None (occurrence: None)
  Receive Date: 20090526
  Receipt Date: 20090518
  Transmission Date: 20091009
  Serious: Yes (Other)
  Sender: FDA-Public Use
  Company Number: PHEH2007US11552

PATIENT
  Sex: Female

DRUGS (1)
  1. ZOMETA [Suspect]
     Dosage: UNK
     Dates: end: 20041201

REACTIONS (12)
  - ANAEMIA [None]
  - ANHEDONIA [None]
  - ANXIETY [None]
  - DEBRIDEMENT [None]
  - DENTAL CARIES [None]
  - INJURY [None]
  - OSTEOMYELITIS [None]
  - OSTEONECROSIS [None]
  - PAIN [None]
  - PAIN IN JAW [None]
  - TOOTH EXTRACTION [None]
  - TOOTH FRACTURE [None]
